FAERS Safety Report 6273346-2 (Version None)
Quarter: 2009Q3

REPORT INFORMATION
  Report Type: 
  Country: None (occurrence: None)
  Receive Date: 20090715
  Receipt Date: 20090702
  Transmission Date: 20100115
  Serious: Yes (Other)
  Sender: FDA-Public Use
  Company Number: 8044342

PATIENT
  Sex: Male
  Weight: 72.5 kg

DRUGS (6)
  1. KEPPRA [Suspect]
     Indication: PARTIAL SEIZURES
     Dosage: 250 MG /D, PO
     Route: 048
     Dates: start: 20080521, end: 20080521
  2. LAMICTAL [Concomitant]
  3. KLONOPIN [Concomitant]
  4. KLONOPIN [Concomitant]
  5. BENADRYL [Concomitant]
  6. TYLENOL W/ CODEINE NO. 3 [Concomitant]

REACTIONS (7)
  - ANXIETY [None]
  - CONFUSIONAL STATE [None]
  - CONVULSION [None]
  - DISTURBANCE IN ATTENTION [None]
  - DYSLEXIA [None]
  - FAECALOMA [None]
  - MEMORY IMPAIRMENT [None]
